FAERS Safety Report 25386228 (Version 1)
Quarter: 2025Q2

REPORT INFORMATION
  Report Type: Spontaneous
  Country: US (occurrence: None)
  Receive Date: 20250531
  Receipt Date: 20250531
  Transmission Date: 20250716
  Serious: Yes (Disabling, Other)
  Sender: FDA-CTU
  Company Number: None

PATIENT
  Age: 45 Year
  Sex: Male
  Weight: 80.55 kg

DRUGS (5)
  1. HERBALS\MITRAGYNINE [Suspect]
     Active Substance: HERBALS\MITRAGYNINE
     Indication: Back pain
     Route: 048
     Dates: start: 20240801
  2. HERBALS\MITRAGYNINE [Suspect]
     Active Substance: HERBALS\MITRAGYNINE
     Indication: Pain in extremity
  3. 7-HYDROXYMITRAGYNINE [Suspect]
     Active Substance: 7-HYDROXYMITRAGYNINE
     Indication: Pain
     Dosage: OTHER QUANTITY : 1 TABLET(S);?FREQUENCY : EVERY 4 HOURS;?
     Route: 048
     Dates: start: 20240915
  4. CLONAZEPAM [Concomitant]
     Active Substance: CLONAZEPAM
  5. HERBALS\MITRAGYNINE [Concomitant]
     Active Substance: HERBALS\MITRAGYNINE

REACTIONS (8)
  - Feeling abnormal [None]
  - Middle insomnia [None]
  - Restless legs syndrome [None]
  - Drug withdrawal syndrome [None]
  - Vomiting [None]
  - Diarrhoea [None]
  - Impaired work ability [None]
  - Product advertising issue [None]

NARRATIVE: CASE EVENT DATE: 20250104
